FAERS Safety Report 4561149-6 (Version None)
Quarter: 2005Q1

REPORT INFORMATION
  Report Type: 
  Country: None (occurrence: None)
  Receive Date: 20050124
  Receipt Date: 20050112
  Transmission Date: 20050727
  Serious: Yes (Disabling, Other)
  Sender: FDA-Public Use
  Company Number: 2005012558

PATIENT
  Age: 64 Year
  Sex: Male

DRUGS (10)
  1. GABAPENTIN [Suspect]
     Indication: NEUROPATHIC PAIN
     Dosage: 300 MG (100 MG, 3 IN 1 D), ORAL
     Route: 048
     Dates: start: 20041013, end: 20041020
  2. NIFEDIPINE [Concomitant]
  3. OMEPRAZOLE [Concomitant]
  4. TOLTERODINE TARTRATE [Concomitant]
  5. ATORVASTATIN (ATORVASTATIN) [Concomitant]
  6. COMBIVENT [Concomitant]
  7. TEARS NATURALE (DEXTRAN 70, HYPROMELLOSE) [Concomitant]
  8. LACTULOSE [Concomitant]
  9. SYMBICORT TURBUHALER  DRACO  (BUDESONIDE , FORMOTEROL FUMARATE) [Concomitant]
  10. CODEINE PHOSPHATE AND ACETAMINOPHEN [Concomitant]

REACTIONS (2)
  - BALANCE DISORDER [None]
  - SOMNOLENCE [None]
